FAERS Safety Report 22908888 (Version 5)
Quarter: 2023Q4

REPORT INFORMATION
  Report Type: Report from Study
  Country: US (occurrence: US)
  Receive Date: 20230905
  Receipt Date: 20231213
  Transmission Date: 20240110
  Serious: Yes (Other)
  Sender: FDA-Public Use
  Company Number: US-002147023-NVSC2021US151026

PATIENT
  Sex: Male
  Weight: 101.13 kg

DRUGS (8)
  1. TREPROSTINIL [Suspect]
     Active Substance: TREPROSTINIL
     Dosage: 61 NG/KG/ MIN, CONT
     Route: 058
     Dates: start: 20210628
  2. TREPROSTINIL [Suspect]
     Active Substance: TREPROSTINIL
     Indication: Pulmonary arterial hypertension
     Dosage: UNK UNK, CONT
     Route: 058
     Dates: start: 20210628
  3. TREPROSTINIL [Suspect]
     Active Substance: TREPROSTINIL
     Dosage: 61 NG/KG/MIN, CONT (STRENGTH: 10 MG/ML)
     Route: 058
  4. TREPROSTINIL [Suspect]
     Active Substance: TREPROSTINIL
     Dosage: 61 NG/KG/MIN, CONT (STRENGTH: 10 MG/ML)
     Route: 058
  5. TREPROSTINIL [Suspect]
     Active Substance: TREPROSTINIL
     Dosage: 61 NG/KG/ MIN, CONT
     Route: 058
     Dates: start: 20210628
  6. AMBRISENTAN [Concomitant]
     Active Substance: AMBRISENTAN
     Indication: Product used for unknown indication
     Dosage: UNK
     Route: 065
  7. TADALAFIL [Concomitant]
     Active Substance: TADALAFIL
     Indication: Product used for unknown indication
     Dosage: UNK
     Route: 065
  8. WARFARIN [Concomitant]
     Active Substance: WARFARIN
     Indication: Product used for unknown indication
     Dosage: UNK
     Route: 065

REACTIONS (19)
  - Deafness [Unknown]
  - Heart rate irregular [Unknown]
  - Nasal congestion [Unknown]
  - Limb discomfort [Unknown]
  - Flushing [Recovered/Resolved]
  - Weight increased [Unknown]
  - Fatigue [Unknown]
  - Infusion site pain [Unknown]
  - Infusion site erythema [Unknown]
  - Infusion site swelling [Unknown]
  - Infusion site reaction [Unknown]
  - Headache [Recovered/Resolved]
  - Nausea [Recovered/Resolved]
  - Abdominal distension [Unknown]
  - Cardiac disorder [Unknown]
  - Application site irritation [Unknown]
  - Product use issue [Unknown]
  - Nasopharyngitis [Unknown]
  - Infusion site inflammation [Unknown]
